FAERS Safety Report 5925173-0 (Version None)
Quarter: 2008Q4

REPORT INFORMATION
  Report Type: 
  Country: None (occurrence: None)
  Receive Date: 20081020
  Receipt Date: 20081020
  Transmission Date: 20090506
  Serious: Yes (Other)
  Sender: FDA-Public Use
  Company Number: None

PATIENT
  Age: 62 Year
  Sex: Female
  Weight: 77.1115 kg

DRUGS (1)
  1. NORVASC [Suspect]
     Indication: HYPERTENSION
     Dosage: 5 MG ONE TIME PER DAY PO
     Route: 048
     Dates: start: 20060815, end: 20080115

REACTIONS (6)
  - ARTHRALGIA [None]
  - ARTHRITIS [None]
  - BURNING SENSATION [None]
  - INFLAMMATION [None]
  - JOINT SWELLING [None]
  - TENDON DISORDER [None]
